FAERS Safety Report 17721028 (Version 2)
Quarter: 2020Q3

REPORT INFORMATION
  Report Type: Spontaneous
  Country: ES (occurrence: ES)
  Receive Date: 20200428
  Receipt Date: 20200918
  Transmission Date: 20201102
  Serious: Yes (Other)
  Sender: FDA-Public Use
  Company Number: ES-SUN PHARMACEUTICAL INDUSTRIES LTD-2020RR-245412

PATIENT
  Sex: Male
  Weight: 67 kg

DRUGS (1)
  1. TAMSULOSIN [Suspect]
     Active Substance: TAMSULOSIN
     Indication: BENIGN PROSTATIC HYPERPLASIA
     Dosage: UNA VEZ AL DIA, POR LA NOCHE
     Route: 048
     Dates: start: 20200129

REACTIONS (1)
  - Retrograde ejaculation [Recovering/Resolving]

NARRATIVE: CASE EVENT DATE: 202001
